FAERS Safety Report 6105480-1 (Version None)
Quarter: 2009Q1

REPORT INFORMATION
  Report Type: 
  Country: None (occurrence: None)
  Receive Date: 20090306
  Receipt Date: 20090227
  Transmission Date: 20090719
  Serious: Yes (Hospitalization)
  Sender: FDA-Public Use
  Company Number: A0771630A

PATIENT
  Age: 50 Year
  Sex: Male
  Weight: 65.5 kg

DRUGS (9)
  1. AVANDIA [Suspect]
     Indication: DIABETES MELLITUS
     Dosage: 4MG PER DAY
     Route: 048
     Dates: start: 20050301, end: 20070601
  2. INSULIN [Concomitant]
  3. ATENOLOL [Concomitant]
  4. LOVASTATIN [Concomitant]
  5. RANITIDINE [Concomitant]
  6. COZAAR [Concomitant]
  7. NIFEDIPINE [Concomitant]
  8. ENALAPRIL MALEATE [Concomitant]
  9. ALLOPURINOL [Concomitant]

REACTIONS (2)
  - BLOOD PRESSURE INCREASED [None]
  - MYOCARDIAL INFARCTION [None]
